FAERS Safety Report 18734872 (Version 1)
Quarter: 2021Q1

REPORT INFORMATION
  Report Type: Spontaneous
  Country: US (occurrence: US)
  Receive Date: 20210113
  Receipt Date: 20210113
  Transmission Date: 20210419
  Serious: Yes (Death)
  Sender: FDA-Public Use
  Company Number: US-PFIZER INC-2021008089

PATIENT
  Age: 73 Year
  Sex: Male

DRUGS (5)
  1. EPINEPHRINE. [Suspect]
     Active Substance: EPINEPHRINE
     Dosage: UNK (1 CC)
     Route: 016
     Dates: start: 19420217
  2. EPINEPHRINE. [Suspect]
     Active Substance: EPINEPHRINE
     Dosage: UNK (0.5 CC, EVERY FOUR HOURS, 4 DOSES)
     Dates: start: 19420216
  3. AMINOPHYLLINE. [Suspect]
     Active Substance: AMINOPHYLLINE
     Indication: BRONCHIECTASIS
  4. AMINOPHYLLINE. [Suspect]
     Active Substance: AMINOPHYLLINE
     Indication: ASTHMA
  5. AMINOPHYLLINE. [Suspect]
     Active Substance: AMINOPHYLLINE
     Indication: STATUS ASTHMATICUS
     Dosage: UNK (DISSOLVED IN 10 CC. OF 10 PER CENT DEXTROSE)
     Route: 042
     Dates: start: 19420217

REACTIONS (3)
  - Ventricular fibrillation [Fatal]
  - Sudden cardiac death [Fatal]
  - Drug ineffective [Fatal]
